FAERS Safety Report 9227491 (Version 2)
Quarter: 2013Q4

REPORT INFORMATION
  Report Type: Report from Study
  Country: CA (occurrence: CA)
  Receive Date: 20130412
  Receipt Date: 20131230
  Transmission Date: 20140711
  Serious: Yes (Other)
  Sender: FDA-Public Use
  Company Number: PHHY2012CA123278

PATIENT
  Sex: Female

DRUGS (3)
  1. GILENYA [Suspect]
     Indication: RELAPSING-REMITTING MULTIPLE SCLEROSIS
     Dosage: 0.5 MG, QD
     Route: 048
     Dates: start: 20110629
  2. GILENYA [Suspect]
     Dosage: 0.5 MG, QD
     Route: 048
     Dates: start: 20131215
  3. DALFAMPRIDINE [Suspect]
     Dosage: UNK UKN, UNK
     Dates: start: 201205, end: 201210

REACTIONS (4)
  - Vaginal infection [Unknown]
  - Fall [Unknown]
  - Feeling abnormal [Recovered/Resolved]
  - Gait disturbance [Recovering/Resolving]
